FAERS Safety Report 12940447 (Version 1)
Quarter: 2016Q4

REPORT INFORMATION
  Report Type: Spontaneous
  Country: US (occurrence: US)
  Receive Date: 20161115
  Receipt Date: 20161115
  Transmission Date: 20170207
  Serious: Yes (Hospitalization)
  Sender: FDA-Public Use
  Company Number: None

PATIENT
  Age: 64 Year
  Sex: Male
  Weight: 77 kg

DRUGS (1)
  1. OLODATEROL [Suspect]
     Active Substance: OLODATEROL
     Indication: DYSPNOEA
     Dates: start: 20160816, end: 20160914

REACTIONS (5)
  - Dyspnoea [None]
  - Abdominal pain upper [None]
  - Rash [None]
  - Angina pectoris [None]
  - Blood pressure systolic increased [None]

NARRATIVE: CASE EVENT DATE: 20160913
